FAERS Safety Report 7022446-8 (Version None)
Quarter: 2010Q3

REPORT INFORMATION
  Report Type: 
  Country: None (occurrence: None)
  Receive Date: 20100930
  Receipt Date: 20100927
  Transmission Date: 20110219
  Serious: Yes (Death)
  Sender: FDA-Public Use
  Company Number: HN-BAYER-201019358LA

PATIENT
  Sex: Female

DRUGS (1)
  1. ALKA-SELTZER [Suspect]
     Indication: GASTROENTERITIS
     Route: 065

REACTIONS (1)
  - DEATH [None]
